FAERS Safety Report 24711723 (Version 6)
Quarter: 2025Q3

REPORT INFORMATION
  Report Type: Spontaneous
  Country: US (occurrence: US)
  Receive Date: 20241209
  Receipt Date: 20250808
  Transmission Date: 20251020
  Serious: Yes (Hospitalization)
  Sender: SPRINGWORKS THERAPEUTIC
  Company Number: US-SPRINGWORKS THERAPEUTICS-SW-002013

PATIENT
  Age: 73 Year
  Sex: Female

DRUGS (3)
  1. OGSIVEO [Suspect]
     Active Substance: NIROGACESTAT HYDROBROMIDE
     Indication: Desmoid tumour
     Dates: start: 20231228
  2. OGSIVEO [Suspect]
     Active Substance: NIROGACESTAT HYDROBROMIDE
     Dates: start: 20231228
  3. OGSIVEO [Suspect]
     Active Substance: NIROGACESTAT HYDROBROMIDE
     Dosage: 50 MILLIGRAM, QD

REACTIONS (10)
  - Dehydration [Not Recovered/Not Resolved]
  - Lethargy [Unknown]
  - Dyspepsia [Unknown]
  - Insomnia [Unknown]
  - Pain [Unknown]
  - Hypotension [Unknown]
  - Drug ineffective [Unknown]
  - Renal disorder [Unknown]
  - Intentional product use issue [Unknown]
  - Underdose [Unknown]
